FAERS Safety Report 9256899 (Version 1)
Quarter: 2013Q2

REPORT INFORMATION
  Report Type: Spontaneous
  Country: US (occurrence: None)
  Receive Date: 20130423
  Receipt Date: 20130423
  Transmission Date: 20140414
  Serious: Yes (Disabling, Other)
  Sender: FDA-Public Use
  Company Number: None

PATIENT
  Age: 60 Year
  Sex: Female
  Weight: 68.04 kg

DRUGS (1)
  1. CYMBALTA [Suspect]
     Indication: MAJOR DEPRESSION
     Route: 048
     Dates: start: 20081201, end: 20130316

REACTIONS (8)
  - Diarrhoea [None]
  - Nausea [None]
  - Anxiety [None]
  - Panic disorder [None]
  - Feelings of worthlessness [None]
  - Major depression [None]
  - Tearfulness [None]
  - Suicidal ideation [None]
